FAERS Safety Report 11614057 (Version 1)
Quarter: 2015Q4

REPORT INFORMATION
  Report Type: Report from Study
  Country: US (occurrence: US)
  Receive Date: 20151008
  Receipt Date: 20151008
  Transmission Date: 20160304
  Serious: Yes (Hospitalization)
  Sender: FDA-Public Use
  Company Number: US-VERTEX PHARMACEUTICALS-2015-004303

PATIENT
  Sex: Male

DRUGS (1)
  1. ORKAMBI [Suspect]
     Active Substance: IVACAFTOR\LUMACAFTOR
     Indication: CYSTIC FIBROSIS
     Dosage: UNK
     Route: 048
     Dates: start: 20150831, end: 20150902

REACTIONS (4)
  - Oedema peripheral [Not Recovered/Not Resolved]
  - Abdominal pain [Recovering/Resolving]
  - Liver function test abnormal [Not Recovered/Not Resolved]
  - Bronchopulmonary aspergillosis allergic [Unknown]
